FAERS Safety Report 13226963 (Version 1)
Quarter: 2017Q1

REPORT INFORMATION
  Report Type: Spontaneous
  Country: US (occurrence: US)
  Receive Date: 20170213
  Receipt Date: 20170213
  Transmission Date: 20170428
  Serious: No
  Sender: FDA-Public Use
  Company Number: US-ELI_LILLY_AND_COMPANY-US201702002349

PATIENT
  Age: 60 Year
  Sex: Female

DRUGS (6)
  1. INVOKANA [Concomitant]
     Active Substance: CANAGLIFLOZIN
  2. OMEPRAZOLE                         /00661203/ [Concomitant]
  3. TRULICITY [Suspect]
     Active Substance: DULAGLUTIDE
     Dosage: 1.5 MG, UNKNOWN
     Route: 065
     Dates: start: 20170127
  4. TRULICITY [Suspect]
     Active Substance: DULAGLUTIDE
     Indication: TYPE 2 DIABETES MELLITUS
     Dosage: 0.75 MG, UNKNOWN
     Route: 065
     Dates: start: 201612
  5. PRANDIN                            /01393601/ [Concomitant]
  6. CLONIDINE                          /00171102/ [Concomitant]
     Active Substance: CLONIDINE
     Indication: BLOOD PRESSURE MEASUREMENT

REACTIONS (10)
  - Feeling abnormal [Not Recovered/Not Resolved]
  - Gait disturbance [Unknown]
  - Abdominal distension [Unknown]
  - Blood glucose increased [Not Recovered/Not Resolved]
  - Dyspnoea [Not Recovered/Not Resolved]
  - Headache [Unknown]
  - Fatigue [Unknown]
  - Drug ineffective [Not Recovered/Not Resolved]
  - Chest pain [Not Recovered/Not Resolved]
  - Dyspepsia [Unknown]

NARRATIVE: CASE EVENT DATE: 20161220
